FAERS Safety Report 23292501 (Version 1)
Quarter: 2023Q4

REPORT INFORMATION
  Report Type: Spontaneous
  Country: US (occurrence: None)
  Receive Date: 20231212
  Receipt Date: 20231212
  Transmission Date: 20240109
  Serious: Yes (Other)
  Sender: FDA-Public Use
  Company Number: None

PATIENT
  Age: 50 Year
  Sex: Female

DRUGS (1)
  1. OZEMPIC [Suspect]
     Active Substance: SEMAGLUTIDE
     Indication: Weight decreased
     Dosage: FREQUENCY : WEEKLY;?
     Route: 058
     Dates: start: 20230317, end: 20231014

REACTIONS (3)
  - Injection site pain [None]
  - Injection site pain [None]
  - Injection site reaction [None]

NARRATIVE: CASE EVENT DATE: 20231014
